FAERS Safety Report 7381708-5 (Version None)
Quarter: 2011Q1

REPORT INFORMATION
  Report Type: 
  Country: None (occurrence: None)
  Receive Date: 20110322
  Receipt Date: 20110311
  Transmission Date: 20110831
  Serious: Yes (Other)
  Sender: FDA-Public Use
  Company Number: IPC201103-000266

PATIENT
  Sex: Female

DRUGS (2)
  1. METOCLOPRAMIDE HYDROCHLORIDE [Suspect]
     Dosage: ORAL
     Route: 048
     Dates: start: 20050701, end: 20091201
  2. METOCLOPRAMIDE [Suspect]
     Dosage: ORAL
     Route: 048
     Dates: start: 20050701, end: 20091201

REACTIONS (6)
  - DYSKINESIA [None]
  - TARDIVE DYSKINESIA [None]
  - DYSTONIA [None]
  - AKATHISIA [None]
  - RESTLESS LEGS SYNDROME [None]
  - TREMOR [None]
